FAERS Safety Report 23783726 (Version 1)
Quarter: 2024Q2

REPORT INFORMATION
  Report Type: Report from Study
  Country: US (occurrence: US)
  Receive Date: 20240425
  Receipt Date: 20240425
  Transmission Date: 20240715
  Serious: Yes (Other)
  Sender: FDA-Public Use
  Company Number: US-JNJFOC-20240449054

PATIENT
  Sex: Male

DRUGS (2)
  1. APALUTAMIDE [Suspect]
     Active Substance: APALUTAMIDE
     Indication: Prostate cancer
     Route: 048
     Dates: start: 2018
  2. LUPRON [Concomitant]
     Active Substance: LEUPROLIDE ACETATE
     Route: 065

REACTIONS (14)
  - Polyarthritis [Unknown]
  - Prostatic specific antigen increased [Unknown]
  - Epistaxis [Unknown]
  - Dry skin [Unknown]
  - Body height decreased [Unknown]
  - Blood pressure increased [Unknown]
  - Breast enlargement [Unknown]
  - Blood glucose increased [Unknown]
  - Balance disorder [Unknown]
  - Fall [Unknown]
  - Contusion [Unknown]
  - Nocturia [Unknown]
  - COVID-19 [Unknown]
  - Bursitis [Unknown]
